FAERS Safety Report 18559609 (Version 1)
Quarter: 2020Q4

REPORT INFORMATION
  Report Type: Spontaneous
  Country: US (occurrence: US)
  Receive Date: 20201128
  Receipt Date: 20201128
  Transmission Date: 20210114
  Serious: Yes (Hospitalization)
  Sender: FDA-Public Use
  Company Number: None

PATIENT
  Age: 54 Year
  Sex: Female
  Weight: 58.8 kg

DRUGS (12)
  1. RUCAPARIB [Suspect]
     Active Substance: RUCAPARIB
     Indication: SMALL CELL LUNG CANCER
     Route: 048
     Dates: start: 20200826, end: 20201120
  2. ALBUTEROL. [Concomitant]
     Active Substance: ALBUTEROL
  3. METOPROLOL. [Concomitant]
     Active Substance: METOPROLOL
  4. ERGOCALCIFEROL. [Concomitant]
     Active Substance: ERGOCALCIFEROL
  5. METFORMIN [Concomitant]
     Active Substance: METFORMIN HYDROCHLORIDE
  6. ONDANSETRON [Concomitant]
     Active Substance: ONDANSETRON
  7. OXYCODONE [Concomitant]
     Active Substance: OXYCODONE
  8. NIVOLUMAB [Suspect]
     Active Substance: NIVOLUMAB
     Indication: SMALL CELL LUNG CANCER
     Dosage: ?          OTHER FREQUENCY:MONTHLY;?
     Route: 042
     Dates: start: 20200826, end: 20201023
  9. TYLENOL [Concomitant]
     Active Substance: ACETAMINOPHEN
  10. CERTIRIZINE [Concomitant]
  11. BENZONATATE. [Concomitant]
     Active Substance: BENZONATATE
  12. GABAPENTIN. [Concomitant]
     Active Substance: GABAPENTIN

REACTIONS (9)
  - Malaise [None]
  - Enterocolitis [None]
  - Nausea [None]
  - Diarrhoea [None]
  - Electrolyte imbalance [None]
  - Vomiting [None]
  - Pancytopenia [None]
  - Metabolic encephalopathy [None]
  - Pneumonia [None]

NARRATIVE: CASE EVENT DATE: 20201120
